FAERS Safety Report 8356410-3 (Version None)
Quarter: 2012Q2

REPORT INFORMATION
  Report Type: 
  Country: None (occurrence: None)
  Receive Date: 20120514
  Receipt Date: 20120509
  Transmission Date: 20120825
  Serious: Yes (Hospitalization)
  Sender: FDA-Public Use
  Company Number: ZA-SANOFI-AVENTIS-2012SA021192

PATIENT
  Age: 50 Year
  Sex: Male

DRUGS (4)
  1. ARAVA [Suspect]
     Route: 048
     Dates: start: 20120201, end: 20120301
  2. HERBALIFE PRODUCTS [Concomitant]
  3. CELEBREX [Concomitant]
  4. ALL OTHER THERAPEUTIC PRODUCTS [Concomitant]

REACTIONS (3)
  - TOXIC EPIDERMAL NECROLYSIS [None]
  - HEPATIC FAILURE [None]
  - RENAL FAILURE [None]
